FAERS Safety Report 9182186 (Version 1)
Quarter: 2013Q1

REPORT INFORMATION
  Report Type: Spontaneous
  Country: GB (occurrence: GB)
  Receive Date: 20130322
  Receipt Date: 20130322
  Transmission Date: 20140127
  Serious: Yes (Hospitalization)
  Sender: FDA-Public Use
  Company Number: GB-PFIZER INC-2013089858

PATIENT
  Age: 66 Year
  Sex: Female
  Weight: 83.8 kg

DRUGS (1)
  1. DOXYCYCLINE MONOHYDRATE [Suspect]
     Indication: LOWER RESPIRATORY TRACT INFECTION
     Dosage: TWO TABLETS ON THE 07/02/2013 AND ONE ON 08/02/2013 IN THE MORNING
     Dates: start: 20130207

REACTIONS (10)
  - Malaise [Unknown]
  - Malaise [Unknown]
  - Dyspepsia [Unknown]
  - Cold sweat [Unknown]
  - Dyspnoea [Unknown]
  - Speech disorder [Unknown]
  - Swollen tongue [Unknown]
  - Rash [Unknown]
  - Dizziness [Unknown]
  - Headache [Unknown]
